FAERS Safety Report 8838841 (Version 2)
Quarter: 2012Q4

REPORT INFORMATION
  Report Type: 
  Country: US (occurrence: US)
  Receive Date: 20121015
  Receipt Date: 20121025
  Transmission Date: 20130627
  Serious: Yes (Other)
  Sender: FDA-Public Use
  Company Number: US-009507513-1210USA005465

PATIENT
  Age: 58 Year
  Sex: Male

DRUGS (3)
  1. JANUVIA [Suspect]
     Route: 048
  2. PRINIVIL [Interacting]
     Route: 048
  3. CATAPRES [Concomitant]

REACTIONS (2)
  - Renal failure acute [Unknown]
  - Drug interaction [Unknown]
